FAERS Safety Report 4758975-7 (Version None)
Quarter: 2005Q3

REPORT INFORMATION
  Report Type: 
  Country: None (occurrence: None)
  Receive Date: 20050901
  Receipt Date: 20050803
  Transmission Date: 20060218
  Serious: Yes (Hospitalization)
  Sender: FDA-Public Use
  Company Number: PHEH2005US08600

PATIENT
  Age: 21 Year
  Sex: Female
  Weight: 59 kg

DRUGS (5)
  1. LEVONORGESTREL AND ETHINYL ESTRADIOL [Suspect]
     Indication: ORAL CONTRACEPTION
     Dosage: 1 MG, QD
  2. ZELNORM [Suspect]
     Indication: INFLAMMATORY BOWEL DISEASE
     Dosage: 6 MG, BID
     Route: 048
  3. PLAQUENIL [Concomitant]
     Indication: RHEUMATOID ARTHRITIS
  4. ELIDEL [Concomitant]
  5. PREDNISONE TAB [Concomitant]
     Indication: INFLAMMATORY BOWEL DISEASE
     Dosage: 20 MG, QD
     Route: 048

REACTIONS (18)
  - ABDOMINAL ABSCESS [None]
  - ABDOMINAL ADHESIONS [None]
  - ABDOMINAL PAIN LOWER [None]
  - ABDOMINAL TENDERNESS [None]
  - COLECTOMY [None]
  - COLITIS ISCHAEMIC [None]
  - COLOSTOMY [None]
  - CUSHINGOID [None]
  - DIARRHOEA HAEMORRHAGIC [None]
  - DRUG INEFFECTIVE [None]
  - FLUSHING [None]
  - GASTROINTESTINAL MUCOSAL NECROSIS [None]
  - HYPOTENSION [None]
  - MUCOSAL ULCERATION [None]
  - OEDEMA MUCOSAL [None]
  - PERITONITIS [None]
  - RECTAL HAEMORRHAGE [None]
  - TACHYCARDIA [None]
